FAERS Safety Report 12840327 (Version 5)
Quarter: 2024Q1

REPORT INFORMATION
  Report Type: Spontaneous
  Country: CA (occurrence: CA)
  Receive Date: 20161012
  Receipt Date: 20240319
  Transmission Date: 20240409
  Serious: Yes (Death, Other)
  Sender: FDA-Public Use
  Company Number: CA-TAKEDA-2016TUS017790

PATIENT
  Age: 68 Year
  Sex: Male
  Weight: 54.422 kg

DRUGS (20)
  1. PANTOPRAZOLE [Suspect]
     Active Substance: PANTOPRAZOLE
     Indication: Carcinoid tumour
     Dosage: 40 MG, 1X/DAY (QD)
     Route: 048
  2. METOPROLOL [Suspect]
     Active Substance: METOPROLOL
     Dosage: 25 MG, 1X/DAY (QD, HALF A TAB)
     Route: 048
     Dates: start: 2015
  3. SANDOSTATIN LAR DEPOT [Suspect]
     Active Substance: OCTREOTIDE ACETATE
     Indication: Carcinoid tumour
     Dosage: 30 MG, MONTHLY
     Route: 030
     Dates: start: 20101125, end: 20130826
  4. SANDOSTATIN LAR DEPOT [Suspect]
     Active Substance: OCTREOTIDE ACETATE
     Dosage: 30 MG, MONTHLY
     Route: 030
     Dates: start: 20101125
  5. SANDOSTATIN LAR DEPOT [Suspect]
     Active Substance: OCTREOTIDE ACETATE
     Dosage: 40 MG, MONTHLY
     Route: 030
     Dates: start: 201307
  6. SANDOSTATIN LAR DEPOT [Suspect]
     Active Substance: OCTREOTIDE ACETATE
     Dosage: 40 MG, MONTHLY
     Route: 030
     Dates: start: 20130905, end: 20140902
  7. SANDOSTATIN LAR DEPOT [Suspect]
     Active Substance: OCTREOTIDE ACETATE
     Dosage: UNK UNK, 1X/DAY
     Route: 058
  8. SANDOSTATIN LAR DEPOT [Suspect]
     Active Substance: OCTREOTIDE ACETATE
     Dosage: 40 MG, Q2WEEKS
     Route: 030
     Dates: start: 20141119, end: 20160113
  9. SANDOSTATIN LAR DEPOT [Suspect]
     Active Substance: OCTREOTIDE ACETATE
     Dosage: 40 MG, MONTHLY
     Route: 030
     Dates: start: 20160229, end: 20160629
  10. SANDOSTATIN LAR DEPOT [Suspect]
     Active Substance: OCTREOTIDE ACETATE
     Dosage: 40 MG, Q2WEEKS
     Route: 030
  11. SANDOSTATIN LAR DEPOT [Suspect]
     Active Substance: OCTREOTIDE ACETATE
     Dosage: 40 MG, MONTHLY
     Route: 030
     Dates: start: 20160727, end: 20161024
  12. SANDOSTATIN LAR DEPOT [Suspect]
     Active Substance: OCTREOTIDE ACETATE
     Dosage: 20 MG
     Route: 065
  13. ACETAMINOPHEN [Concomitant]
     Active Substance: ACETAMINOPHEN
     Dosage: 500 MG, 4X/DAY (Q6HR)
     Route: 065
  14. DILAUDID [Concomitant]
     Active Substance: HYDROMORPHONE HYDROCHLORIDE
     Dosage: UNK, 1X/DAY
     Route: 048
  15. NOVOSEMIDE [Concomitant]
     Dosage: 40 MG, 1X/DAY
     Route: 048
  16. HMS 90 [Concomitant]
     Dosage: 40 MG, 1X/DAY
     Route: 048
  17. LORAZEPAM [Concomitant]
     Active Substance: LORAZEPAM
     Indication: Anxiety
     Dosage: 0.5 MG
     Route: 048
  18. QUETIAPINE [Concomitant]
     Active Substance: QUETIAPINE
     Indication: Anxiety
     Dosage: 0.5 MG, 1X/DAY
     Route: 065
  19. SPIROTONE [Concomitant]
     Dosage: 25 MG, 1X/DAY
     Route: 048
  20. PANTOPRAZOLE SODIUM [Concomitant]
     Active Substance: PANTOPRAZOLE SODIUM
     Dosage: UNK

REACTIONS (55)
  - Death [Fatal]
  - Metastases to liver [Unknown]
  - Anxiety [Unknown]
  - Aphonia [Unknown]
  - Body temperature decreased [Unknown]
  - Cardiac disorder [Unknown]
  - Dyspnoea exertional [Recovered/Resolved]
  - Ear discomfort [Unknown]
  - Epistaxis [Unknown]
  - Gait disturbance [Unknown]
  - Injection site mass [Unknown]
  - Heart rate decreased [Recovered/Resolved]
  - Heart rate increased [Unknown]
  - Heart rate irregular [Unknown]
  - Hot flush [Recovered/Resolved]
  - Impaired healing [Unknown]
  - Injection site pain [Unknown]
  - Injection site reaction [Unknown]
  - Malignant neoplasm progression [Unknown]
  - Muscle spasms [Unknown]
  - Nasal discharge discolouration [Unknown]
  - Sputum discoloured [Recovered/Resolved]
  - Throat irritation [Recovered/Resolved]
  - Swelling [Unknown]
  - Productive cough [Unknown]
  - Blood pressure increased [Unknown]
  - Dyspepsia [Unknown]
  - Palpitations [Unknown]
  - Acne [Unknown]
  - Cough [Recovered/Resolved]
  - Hypertension [Unknown]
  - Upper respiratory tract infection [Recovered/Resolved]
  - Nasopharyngitis [Unknown]
  - Neoplasm [Recovered/Resolved]
  - Myalgia [Unknown]
  - Visual impairment [Recovered/Resolved]
  - Malaise [Unknown]
  - Insomnia [Unknown]
  - Asthenia [Unknown]
  - Diarrhoea [Recovered/Resolved]
  - Dizziness [Recovered/Resolved]
  - Headache [Recovered/Resolved]
  - Sinusitis [Unknown]
  - Skin discolouration [Unknown]
  - Dyspnoea [Unknown]
  - Erythema [Unknown]
  - Weight decreased [Unknown]
  - Oedema [Unknown]
  - Somnolence [Unknown]
  - Peripheral swelling [Unknown]
  - Neoplasm progression [Unknown]
  - Diarrhoea [Unknown]
  - Fatigue [Unknown]
  - Syringe issue [Unknown]
  - Off label use [Unknown]

NARRATIVE: CASE EVENT DATE: 20130701
